FAERS Safety Report 8473101-9 (Version None)
Quarter: 2012Q2

REPORT INFORMATION
  Report Type: 
  Country: None (occurrence: None)
  Receive Date: 20120627
  Receipt Date: 20120621
  Transmission Date: 20120825
  Serious: Yes (Other)
  Sender: FDA-Public Use
  Company Number: JP-ROCHE-1080838

PATIENT
  Sex: Female
  Weight: 46.1 kg

DRUGS (2)
  1. TRASTUZUMAB EMTANSINE [Suspect]
     Indication: BREAST CANCER
     Dosage: LAST DOSE OF TRASTUZUMAB EMTANSINE 166MG ON 24/MAY/2012
     Route: 042
     Dates: start: 20120119
  2. PERTUZUMAB [Suspect]
     Indication: BREAST CANCER
     Dosage: LAST DOSE OF PERTUZUMAB ON 24/MAY/2012
     Route: 042
     Dates: start: 20120119

REACTIONS (1)
  - INTERSTITIAL LUNG DISEASE [None]
